FAERS Safety Report 14051833 (Version 2)
Quarter: 2017Q4

REPORT INFORMATION
  Report Type: Spontaneous
  Country: JP (occurrence: JP)
  Receive Date: 20171006
  Receipt Date: 20171018
  Transmission Date: 20180321
  Serious: Yes (Other)
  Sender: FDA-Public Use
  Company Number: JP-CONCORDIA PHARMACEUTICALS INC.-GSH201710-005679

PATIENT
  Age: 73 Year
  Sex: Female
  Weight: 29 kg

DRUGS (4)
  1. PREDNISOLONE. [Suspect]
     Active Substance: PREDNISOLONE
     Route: 048
  2. CICLESONIDE [Concomitant]
     Active Substance: CICLESONIDE
     Indication: ASTHMA
  3. THIAMAZOLE [Concomitant]
     Active Substance: METHIMAZOLE
     Indication: BASEDOW^S DISEASE
  4. PREDNISOLONE. [Suspect]
     Active Substance: PREDNISOLONE
     Indication: ASTHMA
     Dosage: SUPRAPHYSIOLOGICAL DOSE
     Route: 048

REACTIONS (1)
  - Adrenal insufficiency [Unknown]
